FAERS Safety Report 24689266 (Version 1)
Quarter: 2024Q4

REPORT INFORMATION
  Report Type: Spontaneous
  Country: US (occurrence: US)
  Receive Date: 20241203
  Receipt Date: 20241203
  Transmission Date: 20250115
  Serious: Yes (Death, Other)
  Sender: ORGANON
  Company Number: US-ORGANON-O2411USA002448

PATIENT
  Age: 22 Year
  Sex: Male

DRUGS (1)
  1. SINGULAIR [Suspect]
     Active Substance: MONTELUKAST SODIUM
     Dosage: UNK
     Route: 048
     Dates: start: 2017

REACTIONS (2)
  - Completed suicide [Fatal]
  - Poor quality sleep [Unknown]

NARRATIVE: CASE EVENT DATE: 20170101
